FAERS Safety Report 4388769-6 (Version None)
Quarter: 2004Q2

REPORT INFORMATION
  Report Type: 
  Country: None (occurrence: None)
  Receive Date: 20040624
  Receipt Date: 20040614
  Transmission Date: 20050107
  Serious: Yes (Hospitalization)
  Sender: FDA-Public Use
  Company Number: K200400882

PATIENT
  Age: 83 Year
  Sex: Female

DRUGS (6)
  1. ALTACE [Suspect]
     Dosage: 5 MG, QD, ORAL
     Route: 048
  2. CORVASAL (MOLSIDOMINE) TABLET, 12MG [Suspect]
     Dosage: 12 MG, QD, ORAL
     Route: 048
  3. FUROSEMIDE [Suspect]
     Dosage: 40 MG, QD, ORAL
     Route: 048
  4. DETENSIEL (BISOPROLOL) TABLET, 10MG [Suspect]
     Dosage: SEE IMAGE
     Route: 048
     Dates: start: 20040101
  5. RISPERDAL [Suspect]
     Dosage: SEE IMAGE
     Route: 048
     Dates: start: 20040101
  6. TRINIPATCH (GLYCERYL TRINITRATE 10MG [Suspect]
     Dosage: 10 MG, QD, TRANSDERMAL
     Route: 062

REACTIONS (3)
  - FALL [None]
  - HYPOTENSION [None]
  - MALAISE [None]
